FAERS Safety Report 4627347-8 (Version None)
Quarter: 2005Q2

REPORT INFORMATION
  Report Type: 
  Country: None (occurrence: None)
  Receive Date: 20050405
  Receipt Date: 20050303
  Transmission Date: 20051028
  Serious: Yes (Death)
  Sender: FDA-Public Use
  Company Number: 2005S1000947

PATIENT
  Age: 48 Year
  Sex: Male

DRUGS (2)
  1. CLOZAPINE [Suspect]
     Dosage: SEE IMAGE
     Route: 048
     Dates: start: 20010116
  2. CLOZAPINE [Suspect]
     Dosage: SEE IMAGE
     Route: 048
     Dates: start: 20010116

REACTIONS (2)
  - GLIOBLASTOMA [None]
  - LUNG CANCER METASTATIC [None]
